FAERS Safety Report 10353141 (Version 1)
Quarter: 2014Q3

REPORT INFORMATION
  Report Type: Spontaneous
  Country: JP (occurrence: JP)
  Receive Date: 20140730
  Receipt Date: 20140730
  Transmission Date: 20150326
  Serious: Yes (Death, Other)
  Sender: FDA-Public Use
  Company Number: PHHY2010JP095872

PATIENT
  Age: 49 Year
  Sex: Male

DRUGS (2)
  1. SUNITINIB [Suspect]
     Active Substance: SUNITINIB
     Dosage: UNK
     Dates: start: 201006
  2. GLIVEC [Suspect]
     Active Substance: IMATINIB MESYLATE
     Indication: GASTROINTESTINAL STROMAL TUMOUR
     Dates: end: 201006

REACTIONS (4)
  - Gastrointestinal stromal tumour [Unknown]
  - Malignant neoplasm progression [Unknown]
  - Pancytopenia [Unknown]
  - Infection [Fatal]
